FAERS Safety Report 12521914 (Version 2)
Quarter: 2016Q3

REPORT INFORMATION
  Report Type: Spontaneous
  Country: US (occurrence: US)
  Receive Date: 20160701
  Receipt Date: 20160708
  Transmission Date: 20161109
  Serious: Yes (Other)
  Sender: FDA-Public Use
  Company Number: US-BAYER-2016-126394

PATIENT
  Age: 52 Year
  Sex: Female
  Weight: 62.13 kg

DRUGS (11)
  1. REMODULIN [Suspect]
     Active Substance: TREPROSTINIL
     Indication: PULMONARY ARTERIAL HYPERTENSION
     Dosage: 0.108 ?G/KG, Q48HR
     Route: 041
  2. REMODULIN [Suspect]
     Active Substance: TREPROSTINIL
     Indication: PULMONARY ARTERIAL HYPERTENSION
     Dosage: 0.08 ?G/KG, Q48HR
     Route: 041
     Dates: start: 201503
  3. ADCIRCA [Concomitant]
     Active Substance: TADALAFIL
  4. TORASEMIDE [Concomitant]
     Active Substance: TORSEMIDE
  5. ADEMPAS [Suspect]
     Active Substance: RIOCIGUAT
     Dosage: UNK
     Dates: end: 20160607
  6. ADEMPAS [Suspect]
     Active Substance: RIOCIGUAT
     Dosage: 4.5 MG, UNK
     Route: 048
  7. WARFARIN [Concomitant]
     Active Substance: WARFARIN
  8. GABAPENTIN. [Concomitant]
     Active Substance: GABAPENTIN
  9. ASPIRIN. [Concomitant]
     Active Substance: ASPIRIN
  10. NORETHINDRONE. [Concomitant]
     Active Substance: NORETHINDRONE
     Dosage: UNK
     Dates: start: 20160527
  11. LETAIRIS [Suspect]
     Active Substance: AMBRISENTAN
     Indication: PULMONARY ARTERIAL HYPERTENSION
     Dosage: UNK
     Dates: start: 20120815

REACTIONS (4)
  - Nocturnal dyspnoea [Unknown]
  - Fluid retention [Unknown]
  - Oedema [Unknown]
  - Oedema peripheral [Unknown]

NARRATIVE: CASE EVENT DATE: 20160323
